FAERS Safety Report 13090039 (Version 3)
Quarter: 2017Q2

REPORT INFORMATION
  Report Type: Spontaneous
  Country: US (occurrence: US)
  Receive Date: 20170105
  Receipt Date: 20170621
  Transmission Date: 20170830
  Serious: Yes (Other)
  Sender: FDA-Public Use
  Company Number: US-GLAXOSMITHKLINE-US2017GSK001015

PATIENT
  Age: 46 Year
  Sex: Female
  Weight: 71.66 kg

DRUGS (8)
  1. BENLYSTA [Suspect]
     Active Substance: BELIMUMAB
     Indication: SYSTEMIC LUPUS ERYTHEMATOSUS
     Dosage: 10 MG/KG, U
     Route: 042
     Dates: start: 201610, end: 201611
  2. IBUPROFEN TABLET [Concomitant]
     Active Substance: IBUPROFEN
     Dosage: 400 MG, 2 DAILY PRN
  3. PREDNISONE TABLET [Concomitant]
     Active Substance: PREDNISONE
     Dosage: 5 MG, 2 TABS DAILY
  4. ZANAFLEX TABLET [Concomitant]
     Dosage: 4 MG, 1-2 TAB HS
  5. TRAMADOL TABLET [Concomitant]
     Active Substance: TRAMADOL
     Dosage: 50 MG, 1 TAB EVERY 8 HOURS
  6. CYMBALTA [Suspect]
     Active Substance: DULOXETINE HYDROCHLORIDE
     Indication: SYSTEMIC LUPUS ERYTHEMATOSUS
     Dosage: 30 MG, 1D
  7. CYMBALTA [Suspect]
     Active Substance: DULOXETINE HYDROCHLORIDE
     Indication: FIBROMYALGIA
     Dosage: 60 MG, 1D
  8. PLAQUENIL [Concomitant]
     Active Substance: HYDROXYCHLOROQUINE SULFATE
     Dosage: 200 MG, BID

REACTIONS (19)
  - Chest discomfort [Unknown]
  - Lip swelling [Recovered/Resolved]
  - Malaise [Unknown]
  - Rash [Recovered/Resolved]
  - Lymphadenopathy [Recovered/Resolved]
  - Fibromyalgia [Unknown]
  - Pain [Unknown]
  - Dermatitis allergic [Unknown]
  - Arthralgia [Unknown]
  - Angioedema [Recovered/Resolved]
  - Drug intolerance [Unknown]
  - Asthenia [Unknown]
  - Hypersensitivity [Unknown]
  - Chest pain [Unknown]
  - Pyrexia [Recovered/Resolved]
  - Urticaria [Unknown]
  - Asthma [Unknown]
  - Joint stiffness [Unknown]
  - Somnolence [Unknown]

NARRATIVE: CASE EVENT DATE: 201610
